FAERS Safety Report 21357195 (Version 2)
Quarter: 2022Q3

REPORT INFORMATION
  Report Type: Other
  Country: US (occurrence: None)
  Receive Date: 20220921
  Receipt Date: 20220922
  Transmission Date: 20221026
  Serious: Yes (Other)
  Sender: FDA-Public Use
  Company Number: US-ROCHE-3183069

PATIENT
  Sex: Female

DRUGS (1)
  1. ESBRIET [Suspect]
     Active Substance: PIRFENIDONE
     Indication: Idiopathic pulmonary fibrosis
     Dosage: TAKE 2 CAPSULE(S) BY MOUTH WITH MEALS ,PROTECT FROM SUNLIGHT, REPORT SIDE EFFECTS TO DOCTOR, STORE A
     Route: 048

REACTIONS (1)
  - Breast cancer [Unknown]
